FAERS Safety Report 21141405 (Version 3)
Quarter: 2022Q3

REPORT INFORMATION
  Report Type: Spontaneous
  Country: GB (occurrence: GB)
  Receive Date: 20220728
  Receipt Date: 20220921
  Transmission Date: 20221026
  Serious: Yes (Hospitalization, Disabling)
  Sender: FDA-Public Use
  Company Number: None

PATIENT
  Sex: Male

DRUGS (1)
  1. ONCOTICE [Suspect]
     Active Substance: BACILLUS CALMETTE-GUERIN SUBSTRAIN TICE LIVE ANTIGEN
     Indication: Adverse drug reaction
     Dates: start: 20190902, end: 20190902

REACTIONS (1)
  - Mycobacterium abscessus infection [Recovering/Resolving]

NARRATIVE: CASE EVENT DATE: 20200905
